FAERS Safety Report 26218054 (Version 1)
Quarter: 2025Q4

REPORT INFORMATION
  Report Type: Report from Study
  Country: US (occurrence: US)
  Receive Date: 20251231
  Receipt Date: 20251231
  Transmission Date: 20260117
  Serious: No
  Sender: MALLINCKRODT
  Company Number: US-MALLINCKRODT-MNK202508241

PATIENT
  Sex: Female

DRUGS (1)
  1. CORTICOTROPIN [Suspect]
     Active Substance: CORTICOTROPIN
     Indication: Dry eye
     Dosage: UNKNOWN
     Dates: start: 20241101

REACTIONS (3)
  - Dizziness [Unknown]
  - Acne [Unknown]
  - Blood pressure increased [Unknown]
